FAERS Safety Report 23342762 (Version 4)
Quarter: 2025Q1

REPORT INFORMATION
  Report Type: Report from Study
  Country: US (occurrence: US)
  Receive Date: 20231227
  Receipt Date: 20250311
  Transmission Date: 20250409
  Serious: Yes (Hospitalization)
  Sender: RECORDATI
  Company Number: US-ORPHANEU-2023009176

PATIENT
  Age: 71 Year
  Sex: Female
  Weight: 84.807 kg

DRUGS (18)
  1. ISTURISA [Suspect]
     Active Substance: OSILODROSTAT PHOSPHATE
     Indication: Cushing^s syndrome
     Dosage: 1 MILLIGRAM, BID
     Route: 048
     Dates: start: 202312
  2. ISTURISA [Suspect]
     Active Substance: OSILODROSTAT PHOSPHATE
     Dosage: 1MG IN THE MORNING AND 2 MG IN THE EVENING.
     Route: 048
  3. ISTURISA [Suspect]
     Active Substance: OSILODROSTAT PHOSPHATE
     Dosage: 1MG, BID
     Route: 048
  4. ISTURISA [Suspect]
     Active Substance: OSILODROSTAT PHOSPHATE
     Dosage: 1 MG/2MG AM AND 2 MG PM, BID (1 MG TABLET)
     Route: 048
     Dates: end: 202502
  5. ISTURISA [Suspect]
     Active Substance: OSILODROSTAT PHOSPHATE
     Dosage: 3 MG QAM AND 2 MG QPM, BID (1 MG TABLET)
     Route: 048
     Dates: start: 20250218
  6. ACTOS [Concomitant]
     Active Substance: PIOGLITAZONE HYDROCHLORIDE
     Indication: Product used for unknown indication
     Dosage: 45 MG, QD TABLET
     Route: 048
     Dates: start: 20221129
  7. ALPRAZOLAM [Concomitant]
     Active Substance: ALPRAZOLAM
     Indication: Product used for unknown indication
     Dosage: 0.5 MG, QD TABLET
     Route: 048
     Dates: start: 20221129
  8. ATENOLOL [Concomitant]
     Active Substance: ATENOLOL
     Indication: Product used for unknown indication
     Dosage: 100 MG, QD TABLET
     Route: 048
     Dates: start: 20231129
  9. ATORVASTATIN CALCIUM [Concomitant]
     Active Substance: ATORVASTATIN CALCIUM
     Indication: Product used for unknown indication
     Dosage: 80 MG, QD TABLET
     Route: 048
     Dates: start: 20191129
  10. BUPROPION HYDROCHLORIDE [Concomitant]
     Active Substance: BUPROPION HYDROCHLORIDE
     Indication: Product used for unknown indication
     Dosage: 150 MG (TABLET ER (XL)), QD
     Route: 048
     Dates: start: 20191129
  11. DULOXETINE HYDROCHLORIDE [Concomitant]
     Active Substance: DULOXETINE HYDROCHLORIDE
     Indication: Product used for unknown indication
     Dosage: 60 MG (CAPSULE DELAYED), QD
     Route: 048
     Dates: start: 20221129
  12. OMEPRAZOLE [Concomitant]
     Active Substance: OMEPRAZOLE
     Indication: Product used for unknown indication
     Dosage: 40 MG (CAPSULE DELAYED REL), BID
     Route: 048
     Dates: start: 20221129
  13. OZEMPIC [Concomitant]
     Active Substance: SEMAGLUTIDE
     Indication: Product used for unknown indication
     Dosage: 4 MG/3ML (1 MG/DOSE), QW
     Route: 058
     Dates: start: 20230529
  14. PLAVIX [Concomitant]
     Active Substance: CLOPIDOGREL BISULFATE
     Indication: Product used for unknown indication
     Dosage: 75 MG (TABLET 75 MG), QD
     Route: 048
     Dates: start: 20191129
  15. SPIRONOLACTONE [Concomitant]
     Active Substance: SPIRONOLACTONE
     Indication: Product used for unknown indication
     Dosage: 100 MG (TABLET 100 MG), BID
     Route: 048
     Dates: start: 20221129, end: 20250218
  16. Dialyvite vitamin d3 max [Concomitant]
     Indication: Product used for unknown indication
     Dosage: 1.25 MG (TABLET), BIW
     Route: 048
     Dates: start: 20191129
  17. TRESIBA [Concomitant]
     Active Substance: INSULIN DEGLUDEC
     Indication: Product used for unknown indication
     Dosage: 100 UNIT/ML (SOLUTION), QD
     Route: 058
     Dates: start: 20231201, end: 20250218
  18. VITAMIN B COMPLEX WITH C [Concomitant]
     Active Substance: ASCORBIC ACID\CALCIUM PANTOTHENATE\CYANOCOBALAMIN\NIACINAMIDE\PYRIDOXINE HYDROCHLORIDE\RIBOFLAVIN\TH
     Indication: Product used for unknown indication
     Dosage: CAPSULE, QD
     Route: 048
     Dates: start: 20191129

REACTIONS (12)
  - Blood potassium increased [Unknown]
  - Blood magnesium decreased [Unknown]
  - Nausea [Recovered/Resolved]
  - Diarrhoea [Recovered/Resolved]
  - Gastroenteritis viral [Recovered/Resolved]
  - Alopecia [Recovered/Resolved]
  - Alopecia [Not Recovered/Not Resolved]
  - Asthenia [Unknown]
  - Abdominal pain upper [Recovered/Resolved]
  - Vomiting [Recovered/Resolved]
  - Nausea [Recovered/Resolved]
  - Diarrhoea [Recovered/Resolved]

NARRATIVE: CASE EVENT DATE: 20231201
